FAERS Safety Report 8607826-9 (Version None)
Quarter: 2012Q3

REPORT INFORMATION
  Report Type: 
  Country: None (occurrence: None)
  Receive Date: 20120821
  Receipt Date: 20120815
  Transmission Date: 20120928
  Serious: Yes (Other)
  Sender: FDA-Public Use
  Company Number: PHEH2012US006886

PATIENT
  Sex: Female

DRUGS (7)
  1. ATENOLOL [Concomitant]
  2. EFFEXOR [Concomitant]
  3. TAPAZOLE [Concomitant]
  4. AREDIA [Suspect]
     Indication: MULTIPLE MYELOMA
     Route: 042
  5. ATIVAN [Concomitant]
  6. ZOMETA [Suspect]
     Indication: MULTIPLE MYELOMA
     Route: 042
  7. WELLBUTRIN SR [Concomitant]

REACTIONS (34)
  - IMPAIRED HEALING [None]
  - TYPHOID FEVER [None]
  - EYE DISORDER [None]
  - TREMOR [None]
  - FATIGUE [None]
  - DEPRESSION [None]
  - MANIA [None]
  - BURSITIS [None]
  - INSOMNIA [None]
  - BACK PAIN [None]
  - INFECTION [None]
  - WOUND [None]
  - HYPERTHYROIDISM [None]
  - PALPITATIONS [None]
  - BONE LOSS [None]
  - INFLAMMATION [None]
  - PERIORBITAL OEDEMA [None]
  - OSTEONECROSIS OF JAW [None]
  - DEFORMITY [None]
  - INJURY [None]
  - HAEMORRHAGE [None]
  - PHYSICAL DISABILITY [None]
  - EXPOSED BONE IN JAW [None]
  - TACHYCARDIA [None]
  - MEMORY IMPAIRMENT [None]
  - FOOT DEFORMITY [None]
  - PAIN [None]
  - GINGIVAL ULCERATION [None]
  - BASEDOW'S DISEASE [None]
  - PAIN IN EXTREMITY [None]
  - ANXIETY [None]
  - EMOTIONAL DISTRESS [None]
  - EXOPHTHALMOS [None]
  - DYSLIPIDAEMIA [None]
